FAERS Safety Report 13445848 (Version 30)
Quarter: 2019Q1

REPORT INFORMATION
  Report Type: Report from Study
  Country: CA (occurrence: CA)
  Receive Date: 20170417
  Receipt Date: 20190311
  Transmission Date: 20190417
  Serious: Yes (Other)
  Sender: FDA-Public Use
  Company Number: CA-ROCHE-1918923

PATIENT
  Age: 48 Year
  Sex: Female
  Weight: 50 kg

DRUGS (13)
  1. PERJETA [Suspect]
     Active Substance: PERTUZUMAB
     Indication: HER-2 POSITIVE BREAST CANCER
     Dosage: PAST THERAPY
     Route: 065
  2. HERCEPTIN [Suspect]
     Active Substance: TRASTUZUMAB
     Route: 042
     Dates: start: 20170511
  3. PERJETA [Suspect]
     Active Substance: PERTUZUMAB
     Route: 065
  4. ACETAMINOPHEN. [Concomitant]
     Active Substance: ACETAMINOPHEN
     Route: 048
     Dates: start: 20181102
  5. HERCEPTIN [Suspect]
     Active Substance: TRASTUZUMAB
     Indication: HER-2 POSITIVE BREAST CANCER
     Route: 042
     Dates: start: 2007, end: 2015
  6. KADCYLA [Suspect]
     Active Substance: ADO-TRASTUZUMAB EMTANSINE
     Dosage: FIRST PIR RECEIVED.
     Route: 042
     Dates: start: 20171102
  7. TAXOL [Concomitant]
     Active Substance: PACLITAXEL
  8. TAXOTERE [Concomitant]
     Active Substance: DOCETAXEL
  9. FEMARA [Concomitant]
     Active Substance: LETROZOLE
  10. ZOLADEX [Concomitant]
     Active Substance: GOSERELIN ACETATE
  11. PROCHLORPERAZINE. [Concomitant]
     Active Substance: PROCHLORPERAZINE
     Route: 048
     Dates: start: 20181102
  12. KADCYLA [Suspect]
     Active Substance: ADO-TRASTUZUMAB EMTANSINE
     Dosage: FIRST RPAP DOSE, ON HOLD.
     Route: 042
     Dates: start: 20170511
  13. KADCYLA [Suspect]
     Active Substance: ADO-TRASTUZUMAB EMTANSINE
     Indication: HER-2 POSITIVE BREAST CANCER
     Dosage: STARTED THERAPY THROUGH RPAP (ROCHE PATIENT ASSISTANCE PROGRAM) ON 11/MAY/2017?ON HOLD
     Route: 042
     Dates: start: 2015

REACTIONS (31)
  - Platelet count decreased [Unknown]
  - Hypoaesthesia [Not Recovered/Not Resolved]
  - Hepatic enzyme increased [Unknown]
  - Mean platelet volume increased [Unknown]
  - Neuropathy peripheral [Unknown]
  - Thrombocytopenia [Not Recovered/Not Resolved]
  - Skin cancer [Unknown]
  - Blood chloride decreased [Unknown]
  - Liver abscess [Unknown]
  - Headache [Not Recovered/Not Resolved]
  - Dyspnoea exertional [Unknown]
  - White blood cell count decreased [Unknown]
  - Lethargy [Not Recovered/Not Resolved]
  - Paraesthesia [Not Recovered/Not Resolved]
  - Insomnia [Not Recovered/Not Resolved]
  - Fatigue [Unknown]
  - Lymphocyte count decreased [Unknown]
  - Alanine aminotransferase increased [Unknown]
  - Feeling abnormal [Not Recovered/Not Resolved]
  - Blood alkaline phosphatase increased [Unknown]
  - Skin lesion [Unknown]
  - Pain [Not Recovered/Not Resolved]
  - Blood test abnormal [Unknown]
  - Red cell distribution width increased [Unknown]
  - Lymphadenopathy [Unknown]
  - Nausea [Not Recovered/Not Resolved]
  - Carbon dioxide increased [Unknown]
  - Weight decreased [Unknown]
  - Pleural effusion [Unknown]
  - Transaminases increased [Unknown]
  - Nodule [Unknown]

NARRATIVE: CASE EVENT DATE: 201407
